FAERS Safety Report 7007306-0 (Version None)
Quarter: 2010Q3

REPORT INFORMATION
  Report Type: 
  Country: None (occurrence: None)
  Receive Date: 20100922
  Receipt Date: 20100916
  Transmission Date: 20110219
  Serious: Yes (Other)
  Sender: FDA-Public Use
  Company Number: PHHO2010GB14207

PATIENT
  Sex: Male
  Weight: 81 kg

DRUGS (3)
  1. ZOLEDRONATE T29581+SOLINJ+BM [Suspect]
     Indication: METASTASES TO BONE
     Dosage: 4 MG, UNK
     Route: 042
     Dates: start: 20090519, end: 20100831
  2. CELECOXIB [Concomitant]
  3. HORMONES [Concomitant]

REACTIONS (1)
  - OSTEONECROSIS OF JAW [None]
